FAERS Safety Report 6234818-X (Version None)
Quarter: 2009Q2

REPORT INFORMATION
  Report Type: 
  Country: None (occurrence: None)
  Receive Date: 20090618
  Receipt Date: 20090616
  Transmission Date: 20091009
  Serious: Yes (Death, Hospitalization, Other)
  Sender: FDA-Public Use
  Company Number: IE-BRISTOL-MYERS SQUIBB COMPANY-14350375

PATIENT
  Age: 72 Year
  Sex: Female

DRUGS (7)
  1. CETUXIMAB [Suspect]
     Indication: BREAST CANCER METASTATIC
     Route: 042
     Dates: start: 20080805, end: 20080916
  2. CISPLATIN [Suspect]
     Indication: BREAST CANCER METASTATIC
     Route: 042
     Dates: start: 20080805, end: 20080916
  3. EMCOR [Concomitant]
     Indication: HYPERTENSION
     Dates: start: 20020101
  4. CENTYL [Concomitant]
     Indication: HYPERTENSION
     Dosage: ALTERNATE DAYS
     Dates: start: 19980101
  5. ASPIRIN [Concomitant]
     Indication: PROPHYLAXIS
     Dates: start: 20030101
  6. ISTIN [Concomitant]
     Indication: HYPERTENSION
     Dates: start: 20070101
  7. CALCICHEW [Concomitant]
     Indication: MINERAL SUPPLEMENTATION
     Dates: start: 20030101

REACTIONS (9)
  - ABDOMINAL DISTENSION [None]
  - ANOREXIA [None]
  - COUGH [None]
  - DIARRHOEA [None]
  - FATIGUE [None]
  - OEDEMA [None]
  - PNEUMONIA [None]
  - PYREXIA [None]
  - VOMITING [None]
